FAERS Safety Report 4743099-5 (Version None)
Quarter: 2005Q3

REPORT INFORMATION
  Report Type: 
  Country: None (occurrence: None)
  Receive Date: 20050811
  Receipt Date: 20050808
  Transmission Date: 20060218
  Serious: Yes (Life-Threatening, Hospitalization)
  Sender: FDA-Public Use
  Company Number: DE-MERCK-0508DEU00067

PATIENT
  Age: 102 Year
  Sex: Female
  Weight: 77 kg

DRUGS (1)
  1. ZETIA [Suspect]
     Indication: LIPID METABOLISM DISORDER
     Route: 048

REACTIONS (3)
  - RENAL FAILURE [None]
  - RESPIRATORY TRACT INFECTION [None]
  - RHABDOMYOLYSIS [None]
